FAERS Safety Report 6600199-2 (Version None)
Quarter: 2010Q1

REPORT INFORMATION
  Report Type: 
  Country: None (occurrence: None)
  Receive Date: 20100224
  Receipt Date: 20100216
  Transmission Date: 20100710
  Serious: Yes (Other)
  Sender: FDA-Public Use
  Company Number: B0634732A

PATIENT
  Age: 85 Year

DRUGS (2)
  1. REQUIP [Suspect]
     Indication: DRUG USE FOR UNKNOWN INDICATION
     Dosage: 1MG THREE TIMES PER DAY
     Route: 048
  2. MENESIT [Concomitant]
     Route: 048

REACTIONS (1)
  - SUDDEN ONSET OF SLEEP [None]
